FAERS Safety Report 21870645 (Version 1)
Quarter: 2023Q1

REPORT INFORMATION
  Report Type: Spontaneous
  Country: IN (occurrence: IN)
  Receive Date: 20230117
  Receipt Date: 20230117
  Transmission Date: 20230417
  Serious: Yes (Death, Hospitalization, Other)
  Sender: FDA-Public Use
  Company Number: IN-WOCKHARDT LIMITED-2023WLD000007

PATIENT
  Sex: Male

DRUGS (4)
  1. CEFTRIAXONE [Suspect]
     Active Substance: CEFTRIAXONE
     Indication: Antibiotic prophylaxis
     Dosage: 1 GRAM
     Route: 042
  2. ATENOLOL [Concomitant]
     Active Substance: ATENOLOL
     Indication: Hypertension
     Dosage: 50 MILLIGRAM, QD
     Route: 048
  3. DIAZEPAM [Concomitant]
     Active Substance: DIAZEPAM
     Indication: Premedication
     Route: 048
  4. BUPIVACAINE [Concomitant]
     Active Substance: BUPIVACAINE
     Indication: Anaesthesia procedure
     Route: 065

REACTIONS (3)
  - Acute respiratory distress syndrome [Fatal]
  - Sepsis [Fatal]
  - Anaphylactic reaction [Fatal]
